FAERS Safety Report 4407590-3 (Version None)
Quarter: 2004Q3

REPORT INFORMATION
  Report Type: 
  Country: None (occurrence: None)
  Receive Date: 20040726
  Receipt Date: 20040706
  Transmission Date: 20050211
  Serious: Yes (Hospitalization)
  Sender: FDA-Public Use
  Company Number: JP-ROCHE-373504

PATIENT
  Age: 76 Year
  Sex: Male
  Weight: 64 kg

DRUGS (6)
  1. PEG-INTERFERON A-2A (RO 25-8310) [Suspect]
     Route: 058
     Dates: start: 20040615, end: 20040621
  2. PEG-INTERFERON A-2A (RO 25-8310) [Suspect]
     Route: 058
     Dates: start: 20040622, end: 20040705
  3. DOXAZOSIN MESYLATE [Concomitant]
     Route: 048
  4. NIFEDIPINE [Concomitant]
     Route: 048
  5. UNKNOWN DRUG [Concomitant]
     Dosage: DRUG NAME REPORTED AS OLAPREZINE.
     Route: 048
     Dates: start: 20040615
  6. URSODEOXYCHOLIC ACID [Concomitant]
     Route: 048

REACTIONS (1)
  - SUBDURAL HAEMATOMA [None]
